FAERS Safety Report 7884611-7 (Version None)
Quarter: 2011Q4

REPORT INFORMATION
  Report Type: 
  Country: None (occurrence: None)
  Receive Date: 20111102
  Receipt Date: 20111027
  Transmission Date: 20120403
  Serious: Yes (Disabling, Other)
  Sender: FDA-Public Use
  Company Number: US-MERCK-0707USA01899

PATIENT
  Age: 61 Year
  Sex: Female
  Weight: 56 kg

DRUGS (4)
  1. PREVACID [Concomitant]
     Indication: GASTROOESOPHAGEAL REFLUX DISEASE
     Route: 065
     Dates: start: 20030101, end: 20070101
  2. PREMPRO [Concomitant]
     Route: 065
  3. FOSAMAX [Suspect]
     Indication: OSTEOPOROSIS
     Route: 048
     Dates: start: 20030101, end: 20070626
  4. CORTICOSTEROIDS (UNSPECIFIED) [Concomitant]
     Route: 065
     Dates: start: 20030101, end: 20070101

REACTIONS (38)
  - NECK PAIN [None]
  - SPINAL COLUMN STENOSIS [None]
  - ORAL INFECTION [None]
  - NERVE COMPRESSION [None]
  - NAUSEA [None]
  - OEDEMA MOUTH [None]
  - SINUS ARRHYTHMIA [None]
  - NODULE [None]
  - AUTOIMMUNE THYROIDITIS [None]
  - OSTEONECROSIS OF JAW [None]
  - ADVERSE DRUG REACTION [None]
  - HYPOTHYROIDISM [None]
  - OESOPHAGITIS [None]
  - ABSCESS [None]
  - DEVICE FAILURE [None]
  - IMPAIRED HEALING [None]
  - INTERVERTEBRAL DISC SPACE NARROWING [None]
  - ORAL PAIN [None]
  - INTERVERTEBRAL DISC DEGENERATION [None]
  - NORMAL TENSION GLAUCOMA [None]
  - PAIN IN EXTREMITY [None]
  - ORAL DISORDER [None]
  - BONE LOSS [None]
  - HEADACHE [None]
  - INSOMNIA [None]
  - HYPERCHLORHYDRIA [None]
  - SENSITIVITY OF TEETH [None]
  - PERIODONTAL DISEASE [None]
  - HYPERLIPIDAEMIA [None]
  - GINGIVAL RECESSION [None]
  - CATARACT [None]
  - INTERVERTEBRAL DISC PROTRUSION [None]
  - SPINAL OSTEOARTHRITIS [None]
  - LIVER FUNCTION TEST ABNORMAL [None]
  - TOOTH FRACTURE [None]
  - TOOTH DISORDER [None]
  - OSTEOARTHRITIS [None]
  - ELECTROCARDIOGRAM T WAVE INVERSION [None]
